FAERS Safety Report 23482103 (Version 1)
Quarter: 2024Q1

REPORT INFORMATION
  Report Type: Spontaneous
  Country: US (occurrence: None)
  Receive Date: 20240203
  Receipt Date: 20240203
  Transmission Date: 20240409
  Serious: Yes (Disabling)
  Sender: FDA-Public Use
  Company Number: None

PATIENT
  Age: 65 Year
  Sex: Female
  Weight: 55.35 kg

DRUGS (2)
  1. CIPROFLOXACIN [Suspect]
     Active Substance: CIPROFLOXACIN
     Indication: Nail bed disorder
     Dates: start: 20230928, end: 20231017
  2. CIPROFLOXACIN [Concomitant]
     Active Substance: CIPROFLOXACIN

REACTIONS (6)
  - Fluorosis [None]
  - Musculoskeletal disorder [None]
  - Neuropathy peripheral [None]
  - Burning sensation [None]
  - Economic problem [None]
  - Toxicity to various agents [None]

NARRATIVE: CASE EVENT DATE: 20231021
